FAERS Safety Report 25506268 (Version 1)
Quarter: 2025Q3

REPORT INFORMATION
  Report Type: Spontaneous
  Country: US (occurrence: US)
  Receive Date: 20250702
  Receipt Date: 20250702
  Transmission Date: 20251020
  Serious: No
  Sender: SANOFI AVENTIS
  Company Number: US-SA-2025SA185647

PATIENT
  Age: 60 Year
  Sex: Female
  Weight: 94.55 kg

DRUGS (12)
  1. DUPIXENT [Suspect]
     Active Substance: DUPILUMAB
     Indication: Dermatitis atopic
     Route: 058
     Dates: start: 202506, end: 202506
  2. ASPIRIN [Concomitant]
     Active Substance: ASPIRIN
  3. POTASSIUM GLUCONATE [Concomitant]
     Active Substance: POTASSIUM GLUCONATE
  4. CARVEDILOL [Concomitant]
     Active Substance: CARVEDILOL
  5. ANASTROZOLE [Concomitant]
     Active Substance: ANASTROZOLE
  6. RANOLAZINE [Concomitant]
     Active Substance: RANOLAZINE
  7. SEMGLEE (INSULIN GLARGINE-YFGN) [Concomitant]
     Active Substance: INSULIN GLARGINE-YFGN
  8. INSULIN LISPRO [Concomitant]
     Active Substance: INSULIN LISPRO
  9. TORSEMIDE [Concomitant]
     Active Substance: TORSEMIDE
  10. OLMESARTAN MEDOXOMIL [Concomitant]
     Active Substance: OLMESARTAN MEDOXOMIL
  11. MUPIROCIN [Concomitant]
     Active Substance: MUPIROCIN
  12. JARDIANCE [Concomitant]
     Active Substance: EMPAGLIFLOZIN

REACTIONS (1)
  - Pruritus [Not Recovered/Not Resolved]

NARRATIVE: CASE EVENT DATE: 20250601
